FAERS Safety Report 7979159-5 (Version None)
Quarter: 2011Q4

REPORT INFORMATION
  Report Type: 
  Country: None (occurrence: None)
  Receive Date: 20111201
  Receipt Date: 20111118
  Transmission Date: 20120403
  Serious: Yes (Hospitalization, Other)
  Sender: FDA-Public Use
  Company Number: 2011S1024063

PATIENT
  Age: 91 Year
  Sex: Female
  Weight: 60.782 kg

DRUGS (9)
  1. ASPIRIN [Concomitant]
  2. VERAPAMIL [Concomitant]
  3. MEXILETINE HYDROCHLORIDE [Concomitant]
  4. DIGOXIN [Suspect]
     Indication: ATRIAL FIBRILLATION
     Dosage: 0.25 MG;DAILY
     Dates: end: 20080227
  5. ACTONEL [Concomitant]
  6. AGGRENOX [Concomitant]
  7. ASPIRIN [Concomitant]
  8. FOSAMAX [Concomitant]
  9. TRIAMTERENE AND HYDROCHLOROTHIAZIDE [Concomitant]

REACTIONS (15)
  - BLOOD POTASSIUM DECREASED [None]
  - WEIGHT DECREASED [None]
  - CARDIOACTIVE DRUG LEVEL ABOVE THERAPEUTIC [None]
  - SPINAL OSTEOARTHRITIS [None]
  - URINARY TRACT INFECTION [None]
  - DIZZINESS [None]
  - EMBOLIC STROKE [None]
  - MALAISE [None]
  - NAUSEA [None]
  - VOMITING [None]
  - ESCHERICHIA SEPSIS [None]
  - EMPHYSEMA [None]
  - HYPOTENSION [None]
  - TOXICITY TO VARIOUS AGENTS [None]
  - DIARRHOEA [None]
